FAERS Safety Report 15095500 (Version 5)
Quarter: 2018Q3

REPORT INFORMATION
  Report Type: Spontaneous
  Country: ES (occurrence: ES)
  Receive Date: 20180702
  Receipt Date: 20180831
  Transmission Date: 20181010
  Serious: Yes (Other)
  Sender: FDA-Public Use
  Company Number: ES-009507513-1803ESP008858

PATIENT
  Age: 14 Year
  Sex: Female

DRUGS (10)
  1. BEVACIZUMAB. [Suspect]
     Active Substance: BEVACIZUMAB
     Indication: EWING^S SARCOMA
     Dosage: ON DAY 1 (EVERY 21 DAYS X 5 CYCLES)
     Route: 042
     Dates: start: 201004
  2. DOXORUBICIN [Suspect]
     Active Substance: DOXORUBICIN
     Indication: EWING^S SARCOMA
     Dosage: ON DAYS 1?3. COMPLETED SIX CYCLES PRIOR TO SURGICAL RESECTION.
     Route: 042
     Dates: start: 200904
  3. TEMOZOLOMIDE. [Suspect]
     Active Substance: TEMOZOLOMIDE
     Indication: EWING^S SARCOMA
     Dosage: 100 MG/M2, DAYS 1 TO 21, FIVE CYCLES
     Route: 048
     Dates: start: 201004
  4. IFOSFAMIDE. [Suspect]
     Active Substance: IFOSFAMIDE
     Indication: EWING^S SARCOMA
     Dosage: 3000MG/M2; ON DAYS 1?3. COMPLETED SIX CYCLES PRIOR TO SURGICAL RESECTION.
     Route: 042
     Dates: start: 200904
  5. DACTINOMYCIN [Suspect]
     Active Substance: DACTINOMYCIN
     Indication: EWING^S SARCOMA
     Dosage: 0.75 MG/M2, DAILY, DAYS 1?2 , EIGHT CYCLES
     Route: 042
     Dates: start: 200910
  6. VINCRISTINE [Suspect]
     Active Substance: VINCRISTINE
     Dosage: ON DAY ONE; RECEIVED 8 CYCLES
     Route: 042
     Dates: start: 200910
  7. CYCLOPHOSPHAMIDE. [Suspect]
     Active Substance: CYCLOPHOSPHAMIDE
     Indication: EWING^S SARCOMA
     Dosage: 1500 MG/M2, ON DAY 1; EVERY THREE WEEKS X 8 CYCLES.
     Route: 042
     Dates: start: 200910
  8. ETOPOSIDE. [Suspect]
     Active Substance: ETOPOSIDE
     Indication: EWING^S SARCOMA
     Dosage: ON DAYS 1?3 (EVERY THREE WEEKS X 6 CYCLES). COMPLETED SIX CYCLES PRIOR TO SURGICAL RESECTION.
     Route: 042
     Dates: start: 200904
  9. IRINOTECAN HYDROCHLORIDE. [Suspect]
     Active Substance: IRINOTECAN HYDROCHLORIDE
     Indication: EWING^S SARCOMA
     Dosage: DAYS 1?5 AND 8?13
     Route: 042
     Dates: start: 201004
  10. VINCRISTINE [Suspect]
     Active Substance: VINCRISTINE
     Indication: EWING^S SARCOMA
     Dosage: 1.5 MG/M2, ON DAY ONE; COMPLETED SIX CYCLES PRIOR TO SURGICAL REACTION
     Route: 042
     Dates: start: 200904

REACTIONS (2)
  - Blood stem cell harvest failure [Recovered/Resolved]
  - Off label use [Unknown]

NARRATIVE: CASE EVENT DATE: 201004
